FAERS Safety Report 8777938 (Version 1)
Quarter: 2012Q4

REPORT INFORMATION
  Report Type: 
  Country: US (occurrence: US)
  Receive Date: 20120912
  Receipt Date: 20120912
  Transmission Date: 20130627
  Serious: Yes (Other)
  Sender: FDA-Public Use
  Company Number: PHHY2012US078649

PATIENT
  Age: 80 Year
  Sex: Male

DRUGS (5)
  1. CUBICIN [Suspect]
     Indication: STAPHYLOCOCCAL INFECTION
     Dosage: 10 mg/kg, QD
  2. SULFAMETHOXAZOLE+TRIMETHOPRIM [Suspect]
     Dosage: 8 mg/kg, QD
     Route: 042
  3. VANCOMYCIN [Concomitant]
  4. GALENIC /DALFOPRISTIN/QUINUPRISTIN/ [Concomitant]
  5. LINEZOLID [Concomitant]

REACTIONS (4)
  - Blood creatine phosphokinase increased [Recovered/Resolved]
  - Blood creatinine increased [Unknown]
  - Nausea [Unknown]
  - Vomiting [Unknown]
